FAERS Safety Report 8091325-X (Version None)
Quarter: 2012Q1

REPORT INFORMATION
  Report Type: 
  Country: None (occurrence: None)
  Receive Date: 20120131
  Receipt Date: 20120123
  Transmission Date: 20120608
  Serious: Yes (Hospitalization)
  Sender: FDA-Public Use
  Company Number: US-US-EMD SERONO, INC.-7005561

PATIENT
  Sex: Female
  Weight: 95 kg

DRUGS (2)
  1. REBIF [Suspect]
     Indication: MULTIPLE SCLEROSIS
     Route: 058
     Dates: start: 20100507, end: 20100517
  2. BUTALBITAL [Concomitant]
     Indication: HEADACHE

REACTIONS (7)
  - CONVULSION [None]
  - HIV INFECTION [None]
  - HEAD INJURY [None]
  - HEADACHE [None]
  - PAIN [None]
  - FALL [None]
  - MULTIPLE SCLEROSIS RELAPSE [None]
